FAERS Safety Report 15717196 (Version 1)
Quarter: 2018Q4

REPORT INFORMATION
  Report Type: Spontaneous
  Country: US (occurrence: US)
  Receive Date: 20181206
  Receipt Date: 20181206
  Transmission Date: 20190205
  Serious: No
  Sender: FDA-Public Use
  Company Number: None

PATIENT
  Age: 83 Year
  Sex: Female

DRUGS (1)
  1. ESTRADIOL VAGINAL TAB W/ APPS1S [Suspect]
     Active Substance: ESTRADIOL

REACTIONS (3)
  - Device malfunction [None]
  - Device dispensing error [None]
  - Device issue [None]
